FAERS Safety Report 12137431 (Version 1)
Quarter: 2016Q1

REPORT INFORMATION
  Report Type: Spontaneous
  Country: US (occurrence: US)
  Receive Date: 20160302
  Receipt Date: 20160302
  Transmission Date: 20160526
  Serious: Yes (Other)
  Sender: FDA-Public Use
  Company Number: US-ACTAVIS-2015-23876

PATIENT
  Age: 55 Year
  Sex: Female

DRUGS (2)
  1. EVEROLIMUS [Concomitant]
     Active Substance: EVEROLIMUS
     Indication: METASTASIS
     Dosage: UNK, UNKNOWN
     Route: 065
     Dates: start: 20131116, end: 20150908
  2. TAMOXIFEN CITRATE (ACTAVIS LABORATORIES FL) [Suspect]
     Active Substance: TAMOXIFEN CITRATE
     Indication: METASTASIS
     Dosage: UNK, UNKNOWN
     Route: 065
     Dates: start: 20131001

REACTIONS (1)
  - Malignant neoplasm progression [Unknown]

NARRATIVE: CASE EVENT DATE: 20150717
